FAERS Safety Report 6347533-9 (Version None)
Quarter: 2009Q3

REPORT INFORMATION
  Report Type: 
  Country: None (occurrence: None)
  Receive Date: 20090910
  Receipt Date: 20090828
  Transmission Date: 20100115
  Serious: Yes (Life-Threatening, Hospitalization)
  Sender: FDA-Public Use
  Company Number: IT-GENENTECH-289038

PATIENT
  Sex: Female

DRUGS (7)
  1. BEVACIZUMAB [Suspect]
     Indication: SARCOMA
     Dosage: 7.5 MG/KG, Q3W
     Route: 042
     Dates: start: 20090209
  2. VINCRISTINE [Suspect]
     Indication: SARCOMA
     Dosage: 1.5 MG/M2, Q3W
     Route: 042
     Dates: start: 20090209
  3. ACTINOMYCIN D [Suspect]
     Indication: SARCOMA
     Dosage: 1.5 MG/M2, Q3W
     Route: 042
     Dates: start: 20090209
  4. IFOSFAMIDE [Suspect]
     Indication: SARCOMA
     Dosage: 6 MG/M2, Q3W
     Route: 042
     Dates: start: 20090209
  5. MESNUM [Concomitant]
     Indication: DRUG USE FOR UNKNOWN INDICATION
     Dosage: UNK
     Dates: start: 20090617, end: 20090618
  6. ZOFRAN [Concomitant]
     Indication: DRUG USE FOR UNKNOWN INDICATION
     Dosage: UNK
     Dates: start: 20090617, end: 20090618
  7. SOLDESAM [Concomitant]
     Indication: DRUG USE FOR UNKNOWN INDICATION
     Dosage: UNK
     Dates: start: 20090617, end: 20090618

REACTIONS (1)
  - VENTRICULAR ARRHYTHMIA [None]
